FAERS Safety Report 13255374 (Version 4)
Quarter: 2017Q2

REPORT INFORMATION
  Report Type: Report from Study
  Country: JP (occurrence: JP)
  Receive Date: 20170221
  Receipt Date: 20170420
  Transmission Date: 20170830
  Serious: Yes (Hospitalization, Other)
  Sender: FDA-Public Use
  Company Number: JP-ASTELLAS-2017JP002924

PATIENT
  Age: 85 Year
  Sex: Male

DRUGS (35)
  1. SENNOSIDE                          /00571901/ [Concomitant]
     Active Substance: SENNOSIDES A AND B
     Route: 048
     Dates: start: 2016
  2. SULBACILLIN [Concomitant]
     Active Substance: AMPICILLIN SODIUM\SULBACTAM SODIUM
     Indication: WHITE BLOOD CELL COUNT INCREASED
  3. FUROSEMIDE. [Concomitant]
     Active Substance: FUROSEMIDE
     Route: 048
  4. AMLODIPINE [Concomitant]
     Active Substance: AMLODIPINE BESYLATE
     Route: 048
     Dates: start: 20160615
  5. CARBAZOCHROME SODIUM SULFONATE [Concomitant]
     Active Substance: CARBAZOCHROME SODIUM SULFONATE
     Indication: SUBDURAL HAEMATOMA
     Route: 065
     Dates: start: 20160613, end: 20160614
  6. KAYTWO N [Concomitant]
     Active Substance: MENATETRENONE
     Indication: SUBDURAL HAEMATOMA
     Route: 042
     Dates: start: 20160613, end: 20160614
  7. SULBACILLIN [Concomitant]
     Active Substance: AMPICILLIN SODIUM\SULBACTAM SODIUM
     Indication: C-REACTIVE PROTEIN INCREASED
     Route: 065
     Dates: start: 20160209, end: 20160212
  8. SULBACILLIN [Concomitant]
     Active Substance: AMPICILLIN SODIUM\SULBACTAM SODIUM
     Indication: PYREXIA
  9. AMLODIPINE [Concomitant]
     Active Substance: AMLODIPINE BESYLATE
     Indication: ESSENTIAL HYPERTENSION
     Route: 048
     Dates: end: 20160203
  10. MS REISHIPPU [Concomitant]
     Active Substance: CAMPHOR\MENTHOL\METHYL SALICYLATE
     Indication: PERIARTHRITIS
     Dosage: UNK UNK, UNKNOWN FREQ.
     Route: 061
     Dates: start: 20160629, end: 20160703
  11. CELECOX [Concomitant]
     Active Substance: CELECOXIB
     Indication: CHONDROCALCINOSIS PYROPHOSPHATE
     Route: 048
     Dates: start: 20160208, end: 20160225
  12. ALLOPURINOL. [Concomitant]
     Active Substance: ALLOPURINOL
     Indication: HYPERURICAEMIA
     Route: 048
  13. LOCHOL                             /01224502/ [Concomitant]
     Active Substance: FLUVASTATIN SODIUM
     Indication: DYSLIPIDAEMIA
     Route: 048
     Dates: end: 20160711
  14. LANIRAPID [Concomitant]
     Active Substance: METILDIGOXIN
     Indication: CARDIAC FAILURE CHRONIC
     Dosage: 0.05 MG, ONCE DAILY
     Route: 048
     Dates: end: 20160622
  15. NICARDIPINE [Concomitant]
     Active Substance: NICARDIPINE
     Indication: SUBDURAL HAEMATOMA
     Route: 065
     Dates: start: 20160613, end: 20160614
  16. SOLITA-T1 [Concomitant]
     Indication: THROMBOTIC CEREBRAL INFARCTION
     Route: 065
     Dates: start: 20160204, end: 20160210
  17. ENZALUTAMIDE [Suspect]
     Active Substance: ENZALUTAMIDE
     Indication: HORMONE-REFRACTORY PROSTATE CANCER
     Route: 048
     Dates: start: 20151222
  18. FAMOTIDINE DCI [Concomitant]
     Active Substance: FAMOTIDINE
     Indication: GASTROOESOPHAGEAL REFLUX DISEASE
     Route: 048
  19. CARBOCISTEINE [Concomitant]
     Active Substance: CARBOCYSTEINE
     Indication: SPUTUM RETENTION
     Route: 048
  20. SENNOSIDE                          /00571901/ [Concomitant]
     Active Substance: SENNOSIDES A AND B
     Indication: CONSTIPATION
     Route: 048
  21. METOCLOPRAMIDE. [Concomitant]
     Active Substance: METOCLOPRAMIDE
     Indication: PROPHYLAXIS
     Route: 065
     Dates: start: 20160613, end: 20160614
  22. GLUACETO 35 [Concomitant]
     Indication: SUBDURAL HAEMATOMA
     Route: 065
     Dates: start: 20160615, end: 20160622
  23. MUCOSAL                            /00546002/ [Concomitant]
     Indication: SPUTUM RETENTION
     Route: 048
  24. AVAPRO [Concomitant]
     Active Substance: IRBESARTAN
     Indication: ESSENTIAL HYPERTENSION
     Route: 048
     Dates: end: 20160203
  25. MS REISHIPPU [Concomitant]
     Active Substance: CAMPHOR\MENTHOL\METHYL SALICYLATE
     Indication: CHONDROCALCINOSIS PYROPHOSPHATE
     Dosage: UNK UNK, UNKNOWN FREQ.
     Route: 061
     Dates: start: 20160207, end: 20160211
  26. EDARAVONE [Concomitant]
     Active Substance: EDARAVONE
     Indication: THROMBOTIC CEREBRAL INFARCTION
     Route: 041
     Dates: start: 20160204, end: 20160216
  27. PRAVASTATIN                        /00880402/ [Concomitant]
     Active Substance: PRAVASTATIN SODIUM
     Indication: DYSLIPIDAEMIA
     Route: 048
  28. LASIX [Concomitant]
     Active Substance: FUROSEMIDE
     Indication: ESSENTIAL HYPERTENSION
     Route: 048
     Dates: end: 20160531
  29. FUROSEMIDE. [Concomitant]
     Active Substance: FUROSEMIDE
     Indication: ESSENTIAL HYPERTENSION
     Route: 048
     Dates: start: 20160601
  30. DIGILANOGEN C                      /00007201/ [Concomitant]
     Indication: ATRIAL FIBRILLATION
     Dosage: 0.2 MG, ONCE DAILY
     Route: 065
     Dates: start: 20160613, end: 20160614
  31. BAYASPIRIN [Concomitant]
     Active Substance: ASPIRIN
     Indication: PROPHYLAXIS
     Route: 048
     Dates: start: 20160223
  32. SLONNON HI [Concomitant]
     Indication: THROMBOTIC CEREBRAL INFARCTION
     Route: 065
     Dates: start: 20160204, end: 20160205
  33. SLONNON HI [Concomitant]
     Route: 065
     Dates: start: 20160206, end: 20160210
  34. VITAMEDIN                          /00176001/ [Concomitant]
     Indication: ADVERSE EVENT
     Dosage: 1 BOTTLE, TWICE DAILY
     Route: 065
     Dates: start: 20160204, end: 20160206
  35. MAGNESIUM OXIDE. [Concomitant]
     Active Substance: MAGNESIUM OXIDE
     Indication: CONSTIPATION
     Route: 048

REACTIONS (9)
  - Periarthritis [Recovered/Resolved]
  - White blood cell count increased [Recovered/Resolved]
  - Pyrexia [Recovered/Resolved]
  - Intentional underdose [Unknown]
  - C-reactive protein increased [Recovered/Resolved]
  - Atrial fibrillation [Recovering/Resolving]
  - Thrombotic cerebral infarction [Recovering/Resolving]
  - Chondrocalcinosis pyrophosphate [Recovered/Resolved]
  - Subdural haematoma [Recovering/Resolving]

NARRATIVE: CASE EVENT DATE: 20151222
